FAERS Safety Report 5875739-1 (Version None)
Quarter: 2008Q3

REPORT INFORMATION
  Report Type: 
  Country: None (occurrence: None)
  Receive Date: 20080905
  Receipt Date: 20080819
  Transmission Date: 20090109
  Serious: Yes (Hospitalization)
  Sender: FDA-Public Use
  Company Number: FABR-1000386

PATIENT
  Age: 55 Year
  Sex: Male

DRUGS (1)
  1. FABRAZYME [Suspect]
     Indication: FABRY'S DISEASE
     Dosage: 45 MG, Q2W, INTRAVENOUS
     Route: 042
     Dates: start: 20040601

REACTIONS (2)
  - CARDIAC DISORDER [None]
  - TOE AMPUTATION [None]
